FAERS Safety Report 21963119 (Version 1)
Quarter: 2023Q1

REPORT INFORMATION
  Report Type: Spontaneous
  Country: US (occurrence: None)
  Receive Date: 20230205
  Receipt Date: 20230205
  Transmission Date: 20230417
  Serious: No
  Sender: FDA-Public Use
  Company Number: None

PATIENT
  Age: 77 Year
  Sex: Female
  Weight: 77.9 kg

DRUGS (4)
  1. HYDRALAZINE [Suspect]
     Active Substance: HYDRALAZINE HYDROCHLORIDE
     Indication: Hypertension
     Dosage: OTHER FREQUENCY : ONCE;?
     Route: 042
     Dates: start: 20230202, end: 20230202
  2. FENTANYL [Concomitant]
     Active Substance: FENTANYL
     Dates: start: 20230202
  3. MIDAZOLAM [Concomitant]
     Active Substance: MIDAZOLAM
     Dates: start: 20230202
  4. IOPAMIDOL [Concomitant]
     Active Substance: IOPAMIDOL
     Dates: start: 20230202

REACTIONS (5)
  - Oropharyngeal pain [None]
  - Lip swelling [None]
  - Infusion related reaction [None]
  - Blood pressure systolic decreased [None]
  - Oxygen saturation decreased [None]

NARRATIVE: CASE EVENT DATE: 20230202
